FAERS Safety Report 7957893-0 (Version None)
Quarter: 2011Q4

REPORT INFORMATION
  Report Type: 
  Country: None (occurrence: None)
  Receive Date: 20111205
  Receipt Date: 20111201
  Transmission Date: 20120403
  Serious: Yes (Death)
  Sender: FDA-Public Use
  Company Number: DE-B.I. PHARMACEUTICALS,INC./RIDGEFIELD-2011-DE-05872DE

PATIENT
  Sex: Female
  Weight: 63 kg

DRUGS (14)
  1. MIRTAZAPINE [Concomitant]
  2. SIMVASTATIN [Concomitant]
  3. NOVALGIN [Concomitant]
  4. PANTOPRAZOLE SODIUM [Concomitant]
  5. LYRICA [Concomitant]
  6. DIGITOXIN TAB [Concomitant]
  7. MELPERON [Concomitant]
  8. METOPROLOL SUCCINATE [Concomitant]
  9. PREDNISON H5 [Concomitant]
  10. LORMETAZEPAM [Concomitant]
  11. PRADAXA [Suspect]
     Indication: ATRIAL FIBRILLATION
     Dosage: IF REQUIRED
     Dates: start: 20110927, end: 20110928
  12. TRIAMTERENE AND HYDROCHLOROTHIAZIDE [Concomitant]
  13. RAMIPRIL [Concomitant]
  14. METOPROLOL SUCCINATE [Concomitant]

REACTIONS (1)
  - HAEMORRHAGE INTRACRANIAL [None]
